FAERS Safety Report 8937245 (Version 1)
Quarter: 2012Q4

REPORT INFORMATION
  Report Type: Spontaneous
  Country: US (occurrence: None)
  Receive Date: 20121128
  Receipt Date: 20121128
  Transmission Date: 20130627
  Serious: Yes (Life-Threatening, Other)
  Sender: FDA-Public Use
  Company Number: None

PATIENT
  Age: 54 Year
  Sex: Female
  Weight: 83.46 kg

DRUGS (2)
  1. OXYBUTYNIN [Suspect]
     Indication: URINARY URGENCY
     Dosage: one time -release tab daily
     Dates: start: 20121010, end: 20121105
  2. ENABLEX [Concomitant]

REACTIONS (1)
  - Convulsion [None]
